FAERS Safety Report 8250398-1 (Version None)
Quarter: 2012Q2

REPORT INFORMATION
  Report Type: 
  Country: None (occurrence: None)
  Receive Date: 20120402
  Receipt Date: 20120323
  Transmission Date: 20120825
  Serious: Yes (Other)
  Sender: FDA-Public Use
  Company Number: US-JNJFOC-20120203827

PATIENT
  Sex: Male
  Weight: 68.04 kg

DRUGS (1)
  1. INVEGA [Suspect]
     Indication: SCHIZOPHRENIA, PARANOID TYPE
     Route: 048
     Dates: start: 20111001

REACTIONS (5)
  - HAEMORRHAGE [None]
  - FACE INJURY [None]
  - FALL [None]
  - AKINESIA [None]
  - GAIT DISTURBANCE [None]
